FAERS Safety Report 4805695-6 (Version None)
Quarter: 2005Q4

REPORT INFORMATION
  Report Type: 
  Country: None (occurrence: None)
  Receive Date: 20051021
  Receipt Date: 20050725
  Transmission Date: 20060501
  Serious: Yes (Hospitalization)
  Sender: FDA-Public Use
  Company Number: JP-ROCHE-411576

PATIENT
  Age: 86 Year
  Sex: Female

DRUGS (6)
  1. TORSEMIDE [Suspect]
     Indication: OEDEMA
     Route: 048
     Dates: start: 20050621, end: 20050629
  2. LASIX [Concomitant]
     Dates: start: 20050630
  3. AMLODIPINE BESYLATE [Concomitant]
  4. MEVALOTIN [Concomitant]
  5. ASPIRIN [Concomitant]
  6. CYANOCOBALAMIN [Concomitant]
     Dates: start: 20050707

REACTIONS (1)
  - ANAEMIA [None]
